FAERS Safety Report 15150539 (Version 1)
Quarter: 2018Q3

REPORT INFORMATION
  Report Type: Spontaneous
  Country: PT (occurrence: PT)
  Receive Date: 20180716
  Receipt Date: 20180716
  Transmission Date: 20181010
  Serious: Yes (Life-Threatening, Hospitalization)
  Sender: FDA-Public Use
  Company Number: PT-MYLANLABS-2018M1051206

PATIENT
  Age: 61 Year
  Sex: Female

DRUGS (7)
  1. DILTIAZEM. [Suspect]
     Active Substance: DILTIAZEM
     Indication: HYPERTENSION
     Dosage: 300 MG, QD
     Route: 065
  2. ATROPINE. [Suspect]
     Active Substance: ATROPINE
     Indication: BRADYCARDIA
     Route: 065
  3. SPIRONOLACTONE. [Concomitant]
     Active Substance: SPIRONOLACTONE
     Indication: HYPERTENSION
     Route: 065
  4. RILMENIDINE [Concomitant]
     Active Substance: RILMENIDINE
     Indication: HYPERTENSION
     Route: 065
  5. TORASEMIDE [Concomitant]
     Active Substance: TORSEMIDE
     Indication: HYPERTENSION
     Route: 065
  6. CARVEDILOL. [Interacting]
     Active Substance: CARVEDILOL
     Indication: HYPERTENSION
     Route: 065
  7. SIMVASTATIN. [Concomitant]
     Active Substance: SIMVASTATIN
     Indication: DYSLIPIDAEMIA
     Route: 065

REACTIONS (17)
  - Cardiogenic shock [Recovered/Resolved]
  - Ejection fraction decreased [Recovered/Resolved]
  - Tricuspid valve incompetence [Recovered/Resolved]
  - Hypotension [Recovered/Resolved]
  - Electrocardiogram abnormal [Recovered/Resolved]
  - Cardiac hypertrophy [Recovered/Resolved]
  - Oedema peripheral [Recovering/Resolving]
  - Hyperkalaemia [Recovering/Resolving]
  - Labelled drug-disease interaction medication error [Recovering/Resolving]
  - Haemodynamic instability [Recovered/Resolved]
  - Sinus arrest [Recovered/Resolved]
  - Renal impairment [Recovering/Resolving]
  - Bradycardia [Recovered/Resolved]
  - Mental disorder [Recovering/Resolving]
  - Mitral valve incompetence [Recovered/Resolved]
  - Cardiac arrest [Recovered/Resolved]
  - Hepatic function abnormal [Recovering/Resolving]
